FAERS Safety Report 22319577 (Version 1)
Quarter: 2023Q2

REPORT INFORMATION
  Report Type: Spontaneous
  Country: DE (occurrence: None)
  Receive Date: 20230515
  Receipt Date: 20230515
  Transmission Date: 20230722
  Serious: Yes (Hospitalization)
  Sender: FDA-Public Use
  Company Number: 2023A107895

PATIENT
  Age: 23484 Day
  Sex: Female
  Weight: 75 kg

DRUGS (1)
  1. LYNPARZA [Suspect]
     Active Substance: OLAPARIB
     Indication: Peritoneal carcinoma metastatic
     Route: 048
     Dates: start: 20230204, end: 20230314

REACTIONS (3)
  - Pancytopenia [Recovered/Resolved]
  - Myelosuppression [Unknown]
  - Myelodysplastic syndrome [Unknown]

NARRATIVE: CASE EVENT DATE: 20230314
